FAERS Safety Report 4352388-8 (Version None)
Quarter: 2004Q2

REPORT INFORMATION
  Report Type: 
  Country: None (occurrence: None)
  Receive Date: 20040423
  Receipt Date: 20030714
  Transmission Date: 20050107
  Serious: Yes (Hospitalization)
  Sender: FDA-Public Use
  Company Number: CIP03002011

PATIENT
  Age: 53 Year
  Sex: Female
  Weight: 69.8 kg

DRUGS (2)
  1. MACROBID [Suspect]
     Dosage: 100 MG TWICE DAILY, ORAL
     Route: 048
     Dates: start: 20030625, end: 20030626
  2. MACROBID [Suspect]
     Dosage: 100 MG TWICE DAILY, ORAL
     Route: 048
     Dates: start: 20020601

REACTIONS (2)
  - BLOOD AMYLASE INCREASED [None]
  - PANCREATITIS [None]
